FAERS Safety Report 25287608 (Version 1)
Quarter: 2025Q2

REPORT INFORMATION
  Report Type: Spontaneous
  Country: JP (occurrence: JP)
  Receive Date: 20250509
  Receipt Date: 20250509
  Transmission Date: 20250716
  Serious: Yes (Other)
  Sender: STRIDES
  Company Number: JP-STRIDES ARCOLAB LIMITED-2025SP005652

PATIENT
  Age: 69 Year
  Sex: Male

DRUGS (20)
  1. ETOPOSIDE [Suspect]
     Active Substance: ETOPOSIDE
     Indication: Neurofibrosarcoma
     Route: 065
  2. ETOPOSIDE [Suspect]
     Active Substance: ETOPOSIDE
     Indication: Malignant anorectal neoplasm
  3. ETOPOSIDE [Suspect]
     Active Substance: ETOPOSIDE
     Indication: Malignant melanoma
  4. ETOPOSIDE [Suspect]
     Active Substance: ETOPOSIDE
     Indication: Hepatic cancer metastatic
  5. ETOPOSIDE [Suspect]
     Active Substance: ETOPOSIDE
     Indication: Metastases to lymph nodes
  6. DOXORUBICIN [Suspect]
     Active Substance: DOXORUBICIN
     Indication: Neurofibrosarcoma
     Route: 065
  7. DOXORUBICIN [Suspect]
     Active Substance: DOXORUBICIN
     Indication: Malignant anorectal neoplasm
  8. DOXORUBICIN [Suspect]
     Active Substance: DOXORUBICIN
     Indication: Malignant melanoma
  9. DOXORUBICIN [Suspect]
     Active Substance: DOXORUBICIN
     Indication: Metastases to lymph nodes
  10. DOXORUBICIN [Suspect]
     Active Substance: DOXORUBICIN
     Indication: Hepatic cancer metastatic
  11. IFOSFAMIDE [Suspect]
     Active Substance: IFOSFAMIDE
     Indication: Neurofibrosarcoma
     Route: 065
  12. IFOSFAMIDE [Suspect]
     Active Substance: IFOSFAMIDE
     Indication: Malignant anorectal neoplasm
  13. IFOSFAMIDE [Suspect]
     Active Substance: IFOSFAMIDE
     Indication: Malignant melanoma
  14. IFOSFAMIDE [Suspect]
     Active Substance: IFOSFAMIDE
     Indication: Metastases to lymph nodes
  15. IFOSFAMIDE [Suspect]
     Active Substance: IFOSFAMIDE
     Indication: Hepatic cancer metastatic
  16. CARBOPLATIN [Suspect]
     Active Substance: CARBOPLATIN
     Indication: Neurofibrosarcoma
     Route: 065
  17. CARBOPLATIN [Suspect]
     Active Substance: CARBOPLATIN
     Indication: Malignant melanoma
  18. CARBOPLATIN [Suspect]
     Active Substance: CARBOPLATIN
     Indication: Malignant anorectal neoplasm
  19. CARBOPLATIN [Suspect]
     Active Substance: CARBOPLATIN
     Indication: Metastases to lymph nodes
  20. CARBOPLATIN [Suspect]
     Active Substance: CARBOPLATIN
     Indication: Hepatic cancer metastatic

REACTIONS (2)
  - Neoplasm progression [Unknown]
  - Drug ineffective for unapproved indication [Unknown]
